FAERS Safety Report 21916001 (Version 1)
Quarter: 2023Q1

REPORT INFORMATION
  Report Type: Spontaneous
  Country: US (occurrence: None)
  Receive Date: 20230125
  Receipt Date: 20230125
  Transmission Date: 20230418
  Serious: Yes (Hospitalization)
  Sender: FDA-Public Use
  Company Number: None

PATIENT
  Age: 53 Year
  Sex: Female
  Weight: 148.5 kg

DRUGS (2)
  1. PREDNISONE [Suspect]
     Active Substance: PREDNISONE
     Indication: Laryngitis
     Dosage: OTHER QUANTITY : 10 TABLET(S);?FREQUENCY : TWICE A DAY;?
     Route: 048
     Dates: start: 20221201, end: 20221203
  2. PREDNISONE [Suspect]
     Active Substance: PREDNISONE
     Indication: Gastrooesophageal reflux disease

REACTIONS (5)
  - Abnormal behaviour [None]
  - COVID-19 [None]
  - Insomnia [None]
  - Feeling abnormal [None]
  - Substance-induced psychotic disorder [None]

NARRATIVE: CASE EVENT DATE: 20221230
